FAERS Safety Report 15594481 (Version 1)
Quarter: 2018Q4

REPORT INFORMATION
  Report Type: Spontaneous
  Country: BR (occurrence: BR)
  Receive Date: 20181107
  Receipt Date: 20181107
  Transmission Date: 20190205
  Serious: Yes (Other)
  Sender: FDA-Public Use
  Company Number: BR-SHIRE-BR201842312

PATIENT

DRUGS (4)
  1. VENVANSE [Suspect]
     Active Substance: LISDEXAMFETAMINE DIMESYLATE
     Indication: ATTENTION DEFICIT/HYPERACTIVITY DISORDER
     Dosage: 30 UNK, UNK
     Route: 065
  2. RIVOTRIL [Suspect]
     Active Substance: CLONAZEPAM
     Indication: DEPRESSION
     Route: 065
  3. FLUOXETINE HYDROCHLORIDE. [Concomitant]
     Active Substance: FLUOXETINE HYDROCHLORIDE
     Indication: DEPRESSION
  4. VENVANSE [Suspect]
     Active Substance: LISDEXAMFETAMINE DIMESYLATE
     Dosage: 50 MG, UNK
     Route: 065

REACTIONS (10)
  - Suicidal ideation [Unknown]
  - Drug effect delayed [Unknown]
  - Malaise [Unknown]
  - Decreased appetite [Unknown]
  - Drug dependence [Unknown]
  - Anxiety [Unknown]
  - Panic attack [Unknown]
  - Paraesthesia [Unknown]
  - Insomnia [Unknown]
  - Weight decreased [Unknown]
